FAERS Safety Report 5481532-4 (Version None)
Quarter: 2007Q4

REPORT INFORMATION
  Report Type: 
  Country: None (occurrence: None)
  Receive Date: 20071010
  Receipt Date: 20070928
  Transmission Date: 20080405
  Serious: Yes (Hospitalization)
  Sender: FDA-Public Use
  Company Number: US-AMGEN-KDL243686

PATIENT
  Sex: Male
  Weight: 98.1 kg

DRUGS (1)
  1. ENBREL [Suspect]
     Indication: PSORIASIS

REACTIONS (1)
  - RETROPERITONEAL FIBROSIS [None]
